FAERS Safety Report 7207621-1 (Version None)
Quarter: 2011Q1

REPORT INFORMATION
  Report Type: 
  Country: None (occurrence: None)
  Receive Date: 20110103
  Receipt Date: 20101229
  Transmission Date: 20110831
  Serious: Yes (Other)
  Sender: FDA-Public Use
  Company Number: PT-PFIZER INC-2010127913

PATIENT
  Age: 62 Year
  Sex: Female
  Weight: 80 kg

DRUGS (2)
  1. ZARATOR [Suspect]
     Indication: HYPERCHOLESTEROLAEMIA
     Dosage: 10 MG, 1X/DAY
     Route: 048
     Dates: start: 20100927, end: 20100929
  2. INFLUENZA VACCINE [Concomitant]
     Dosage: UNK
     Dates: start: 20100928, end: 20100928

REACTIONS (6)
  - FAECES DISCOLOURED [None]
  - HYPOTENSION [None]
  - YELLOW SKIN [None]
  - ASTHENIA [None]
  - DIARRHOEA [None]
  - TINNITUS [None]
